FAERS Safety Report 16400420 (Version 8)
Quarter: 2019Q3

REPORT INFORMATION
  Report Type: Report from Study
  Country: AU (occurrence: AU)
  Receive Date: 20190606
  Receipt Date: 20190725
  Transmission Date: 20191004
  Serious: Yes (Death, Hospitalization)
  Sender: FDA-Public Use
  Company Number: AU-EISAI MEDICAL RESEARCH-EC-2019-057137

PATIENT
  Age: 66 Year
  Sex: Male
  Weight: 87.9 kg

DRUGS (12)
  1. LENVATINIB [Suspect]
     Active Substance: LENVATINIB
     Indication: GASTRIC CANCER
     Route: 048
     Dates: start: 20190501, end: 20190515
  2. PEMBROLIZUMAB. [Suspect]
     Active Substance: PEMBROLIZUMAB
     Indication: GASTRIC CANCER
     Route: 041
     Dates: start: 20190501, end: 20190501
  3. PEMBROLIZUMAB. [Suspect]
     Active Substance: PEMBROLIZUMAB
     Route: 041
     Dates: start: 20190522, end: 20190522
  4. OXYCODONE [Concomitant]
     Active Substance: OXYCODONE
     Dates: start: 20190522
  5. LENVATINIB [Suspect]
     Active Substance: LENVATINIB
     Route: 048
     Dates: start: 20190516, end: 20190516
  6. VOLTAREN [Concomitant]
     Active Substance: DICLOFENAC SODIUM
     Dates: start: 201805
  7. PREDNISOLONE. [Concomitant]
     Active Substance: PREDNISOLONE
     Dates: start: 20190516, end: 20190516
  8. GEMFIBROZIL. [Concomitant]
     Active Substance: GEMFIBROZIL
     Dates: start: 201301
  9. RABEPRAZOLE SODIUM. [Concomitant]
     Active Substance: RABEPRAZOLE SODIUM
     Dates: start: 201805
  10. PHYTONADIONE. [Concomitant]
     Active Substance: PHYTONADIONE
     Dates: start: 20190529, end: 20190529
  11. RIVAROXABAN [Concomitant]
     Active Substance: RIVAROXABAN
     Dates: start: 201902, end: 20190515
  12. ENDONE [Concomitant]
     Active Substance: OXYCODONE HYDROCHLORIDE
     Dates: start: 20190515

REACTIONS (1)
  - Hyperbilirubinaemia [Not Recovered/Not Resolved]

NARRATIVE: CASE EVENT DATE: 20190529
